FAERS Safety Report 10703241 (Version 2)
Quarter: 2015Q1

REPORT INFORMATION
  Report Type: Report from Study
  Country: DE (occurrence: DE)
  Receive Date: 20150112
  Receipt Date: 20150112
  Transmission Date: 20150721
  Serious: Yes (Death, Hospitalization)
  Sender: FDA-Public Use
  Company Number: DE-009507513-1409DEU014039

PATIENT
  Age: 49 Year
  Sex: Male

DRUGS (5)
  1. PANTOZOL [Concomitant]
     Active Substance: PANTOPRAZOLE SODIUM
     Indication: PROPHYLAXIS
     Dosage: 40 MG, QD
     Route: 048
     Dates: start: 2013
  2. L-THYROXIN [Concomitant]
     Active Substance: LEVOTHYROXINE SODIUM
     Indication: HYPOTHYROIDISM
     Dosage: 25 MG, QD
     Route: 048
     Dates: start: 201402, end: 20141125
  3. PERFALGAN [Concomitant]
     Active Substance: ACETAMINOPHEN
     Indication: PYREXIA
     Dosage: UNK, PRN
     Route: 042
  4. ALLOPURINOL. [Concomitant]
     Active Substance: ALLOPURINOL
     Indication: HYPERURICAEMIA
     Dosage: 300 MG, QD
     Route: 048
  5. PEMBROLIZUMAB. [Suspect]
     Active Substance: PEMBROLIZUMAB
     Indication: METASTATIC MALIGNANT MELANOMA
     Dosage: 2 MG/KG, Q3W
     Route: 042
     Dates: start: 20140924, end: 20141126

REACTIONS (12)
  - Vomiting [Recovered/Resolved]
  - Catheter placement [Recovered/Resolved]
  - Abdominal cavity drainage [Recovered/Resolved]
  - Abdominal pain [Recovering/Resolving]
  - Disease progression [Fatal]
  - Renal failure [Fatal]
  - Sepsis [Recovering/Resolving]
  - Infection [Fatal]
  - Ascites [Not Recovered/Not Resolved]
  - Chills [Recovered/Resolved]
  - Normochromic normocytic anaemia [Fatal]
  - Pyrexia [Recovered/Resolved]

NARRATIVE: CASE EVENT DATE: 20140924
